FAERS Safety Report 7430321-X (Version None)
Quarter: 2011Q2

REPORT INFORMATION
  Report Type: 
  Country: None (occurrence: None)
  Receive Date: 20110419
  Receipt Date: 20110419
  Transmission Date: 20111010
  Serious: No
  Sender: FDA-Public Use
  Company Number: None

PATIENT
  Age: 53 Year
  Sex: Female
  Weight: 63.5036 kg

DRUGS (1)
  1. AVELOX [Suspect]
     Indication: PNEUMONIA
     Dosage: 400 MG. ONCE A DAY BUCCAL
     Route: 002
     Dates: start: 20110405, end: 20110409

REACTIONS (4)
  - PARAESTHESIA [None]
  - PAIN IN EXTREMITY [None]
  - TENDON PAIN [None]
  - ARTHRALGIA [None]
